FAERS Safety Report 4667246-9 (Version None)
Quarter: 2005Q2

REPORT INFORMATION
  Report Type: 
  Country: None (occurrence: None)
  Receive Date: 20050421
  Receipt Date: 20050128
  Transmission Date: 20051028
  Serious: Yes (Other)
  Sender: FDA-Public Use
  Company Number: 800267

PATIENT
  Age: 45 Year
  Sex: Female
  Weight: 65.318 kg

DRUGS (1)
  1. EXTRANEAL [Suspect]
     Indication: PERITONEAL DIALYSIS
     Dosage: 2 L; QD; INTRAPERITONEAL
     Route: 033
     Dates: start: 20041218, end: 20050125

REACTIONS (3)
  - ERYTHEMA [None]
  - PRURITUS [None]
  - RASH PAPULAR [None]
